FAERS Safety Report 4987538-3 (Version None)
Quarter: 2006Q2

REPORT INFORMATION
  Report Type: 
  Country: None (occurrence: None)
  Receive Date: 20060501
  Receipt Date: 20060421
  Transmission Date: 20061013
  Serious: Yes (Hospitalization, Other)
  Sender: FDA-Public Use
  Company Number: 2006UW07495

PATIENT
  Age: 66 Year
  Sex: Female
  Weight: 90.9 kg

DRUGS (4)
  1. PRILOSEC OTC [Suspect]
     Indication: GASTROOESOPHAGEAL REFLUX DISEASE
     Route: 048
     Dates: start: 20060419, end: 20060420
  2. XANAX [Concomitant]
  3. ZANTAC [Concomitant]
  4. LOTREL [Concomitant]

REACTIONS (6)
  - DEHYDRATION [None]
  - DRUG ADMINISTRATION ERROR [None]
  - DRUG INEFFECTIVE [None]
  - GASTROOESOPHAGEAL REFLUX DISEASE [None]
  - HERNIA [None]
  - OVERDOSE [None]
